FAERS Safety Report 8067370-7 (Version None)
Quarter: 2012Q1

REPORT INFORMATION
  Report Type: 
  Country: None (occurrence: None)
  Receive Date: 20120124
  Receipt Date: 20120117
  Transmission Date: 20120608
  Serious: Yes (Hospitalization)
  Sender: FDA-Public Use
  Company Number: US-PFIZER INC-2012014660

PATIENT
  Age: 50 Year
  Sex: Male

DRUGS (3)
  1. CYTARABINE [Suspect]
     Indication: ACUTE MYELOID LEUKAEMIA
     Dosage: 39060 MILLIGRAM TOTAL
     Dates: start: 20110915
  2. IDARUBICIN HCL [Suspect]
     Indication: ACUTE MYELOID LEUKAEMIA
  3. DASATINIB [Suspect]
     Indication: ACUTE MYELOID LEUKAEMIA
     Dosage: 1300 MILLIGRAM TOTAL
     Route: 048
     Dates: start: 20110915

REACTIONS (1)
  - FEBRILE NEUTROPENIA [None]
